FAERS Safety Report 8426971-4 (Version None)
Quarter: 2012Q2

REPORT INFORMATION
  Report Type: 
  Country: None (occurrence: None)
  Receive Date: 20120611
  Receipt Date: 20120522
  Transmission Date: 20120825
  Serious: Yes (Hospitalization)
  Sender: FDA-Public Use
  Company Number: CA-ROCHE-1069680

PATIENT
  Sex: Female
  Weight: 70.824 kg

DRUGS (4)
  1. ACTEMRA [Suspect]
     Indication: RHEUMATOID ARTHRITIS
     Route: 042
     Dates: start: 20120329, end: 20120329
  2. PLAQUENIL [Concomitant]
  3. TRIAZIDE [Concomitant]
  4. PREDNISONE TAB [Concomitant]

REACTIONS (4)
  - PAIN [None]
  - PRURITUS [None]
  - DRUG INTOLERANCE [None]
  - ALOPECIA [None]
